FAERS Safety Report 6757655-6 (Version None)
Quarter: 2010Q2

REPORT INFORMATION
  Report Type: 
  Country: None (occurrence: None)
  Receive Date: 20100524
  Receipt Date: 20100129
  Transmission Date: 20101027
  Serious: No
  Sender: FDA-Public Use
  Company Number: 005935

PATIENT
  Sex: Female
  Weight: 48.5 kg

DRUGS (5)
  1. CIMZIA [Suspect]
     Indication: CROHN'S DISEASE
     Dosage: (400 MG SUBCUTANEOUS)
     Route: 058
     Dates: start: 20091101
  2. PENTASA [Concomitant]
  3. ENTOCORT EC [Concomitant]
  4. PREDNISONE [Concomitant]
  5. DIPHENOXYLATE [Concomitant]

REACTIONS (3)
  - ASTHMA [None]
  - DIARRHOEA [None]
  - FREQUENT BOWEL MOVEMENTS [None]
